FAERS Safety Report 7940346-3 (Version None)
Quarter: 2011Q4

REPORT INFORMATION
  Report Type: 
  Country: None (occurrence: None)
  Receive Date: 20111127
  Receipt Date: 20110819
  Transmission Date: 20120403
  Serious: No
  Sender: FDA-Public Use
  Company Number: US-TEVA-297069USA

PATIENT
  Sex: Female

DRUGS (1)
  1. BUDESONIDE [Suspect]
     Dosage: 0.5 MG/2 ML
     Route: 055
     Dates: start: 20110818

REACTIONS (3)
  - COUGH [None]
  - DRY THROAT [None]
  - DRY MOUTH [None]
